FAERS Safety Report 23309422 (Version 1)
Quarter: 2023Q4

REPORT INFORMATION
  Report Type: Spontaneous
  Country: NL (occurrence: NL)
  Receive Date: 20231218
  Receipt Date: 20231218
  Transmission Date: 20240109
  Serious: Yes (Hospitalization, Other)
  Sender: FDA-Public Use
  Company Number: NL-BAYER-2023A177165

PATIENT
  Age: 34 Year
  Sex: Female

DRUGS (1)
  1. MIRENA [Suspect]
     Active Substance: LEVONORGESTREL
     Dosage: 20?G/DAY
     Route: 015
     Dates: start: 20230925, end: 202311

REACTIONS (6)
  - Pelvic inflammatory disease [None]
  - Abdominal abscess [None]
  - Intra-abdominal haemorrhage [None]
  - Abdominal pain [None]
  - Pyrexia [None]
  - Post procedural haemorrhage [None]

NARRATIVE: CASE EVENT DATE: 20230101
